FAERS Safety Report 12085413 (Version 1)
Quarter: 2016Q1

REPORT INFORMATION
  Report Type: Other
  Country: None (occurrence: US)
  Receive Date: 20160217
  Receipt Date: 20160217
  Transmission Date: 20160526
  Serious: Yes (Hospitalization)
  Sender: FDA-Public Use
  Company Number: US-AIR PRODUCTS AND CHEMICALS, INC. -1048007

PATIENT
  Sex: Male

DRUGS (1)
  1. OXYGEN. [Suspect]
     Active Substance: OXYGEN

REACTIONS (4)
  - Unresponsive to stimuli [None]
  - Hypercapnia [None]
  - Chronic obstructive pulmonary disease [None]
  - Respiratory acidosis [None]
